FAERS Safety Report 7947185-8 (Version None)
Quarter: 2011Q4

REPORT INFORMATION
  Report Type: 
  Country: None (occurrence: None)
  Receive Date: 20111129
  Receipt Date: 20111125
  Transmission Date: 20120403
  Serious: Yes (Death, Life-Threatening, Hospitalization)
  Sender: FDA-Public Use
  Company Number: JP-B.I. PHARMACEUTICALS,INC./RIDGEFIELD-2011-BP-24375NB

PATIENT
  Sex: Female
  Weight: 49 kg

DRUGS (2)
  1. MICARDIS [Suspect]
     Indication: HYPERTENSION
     Dosage: 40 MG
     Route: 048
     Dates: end: 20111007
  2. PANT-POWER [Suspect]
     Route: 065

REACTIONS (4)
  - SEPSIS [None]
  - HEPATITIS FULMINANT [None]
  - ACUTE HEPATIC FAILURE [None]
  - PNEUMONIA [None]
